FAERS Safety Report 5733149-1 (Version None)
Quarter: 2008Q2

REPORT INFORMATION
  Report Type: 
  Country: None (occurrence: None)
  Receive Date: 20080507
  Receipt Date: 20080421
  Transmission Date: 20081010
  Serious: Yes (Hospitalization)
  Sender: FDA-Public Use
  Company Number: DE-JNJFOC-20070401611

PATIENT
  Age: 63 Year
  Sex: Female
  Weight: 104 kg

DRUGS (5)
  1. DECITABINE    (DECITABINE) LYOPHILIZED [Suspect]
     Indication: MYELODYSPLASTIC SYNDROME
     Dosage: 270 MG, IN 1 TOTAL, INTRAVENOUS
     Route: 042
     Dates: start: 20070129, end: 20070314
  2. CIPROFLOXACIN HCL [Concomitant]
  3. ACYCLOVIR [Concomitant]
  4. ITRACONAZOLE [Concomitant]
  5. ANTI FUNGAL (ANTIFUNGALS) [Concomitant]

REACTIONS (6)
  - FALL [None]
  - HAEMATURIA [None]
  - NONSPECIFIC REACTION [None]
  - PNEUMONIA [None]
  - SUBARACHNOID HAEMORRHAGE [None]
  - SUBDURAL HAEMATOMA [None]
